FAERS Safety Report 20462978 (Version 2)
Quarter: 2022Q1

REPORT INFORMATION
  Report Type: Report from Study
  Country: US (occurrence: US)
  Receive Date: 20220211
  Receipt Date: 20220315
  Transmission Date: 20220423
  Serious: Yes (Hospitalization, Other)
  Sender: FDA-Public Use
  Company Number: US-BRISTOL-MYERS SQUIBB COMPANY-BMS-2022-017861

PATIENT
  Age: 66 Year
  Sex: Female
  Weight: 48.9 kg

DRUGS (33)
  1. IPILIMUMAB [Suspect]
     Active Substance: IPILIMUMAB
     Indication: Pancreatic carcinoma metastatic
     Dosage: 1 MILLIGRAM/KILOGRAM
     Route: 065
     Dates: start: 20220118, end: 20220118
  2. HYDROXYCHLOROQUINE SULFATE [Suspect]
     Active Substance: HYDROXYCHLOROQUINE SULFATE
     Indication: Pancreatic carcinoma metastatic
     Dosage: 1200 MILLIGRAM
     Route: 065
     Dates: start: 20211229, end: 20220201
  3. HYDROXYCHLOROQUINE SULFATE [Suspect]
     Active Substance: HYDROXYCHLOROQUINE SULFATE
     Dosage: 1200 MILLIGRAM
     Route: 065
     Dates: start: 20220204
  4. PACLITAXEL [Suspect]
     Active Substance: PACLITAXEL
     Indication: Pancreatic carcinoma metastatic
     Dosage: 125 MILLIGRAM/SQ. METER
     Route: 065
     Dates: start: 20211229, end: 20220125
  5. GEMCITABINE HYDROCHLORIDE [Suspect]
     Active Substance: GEMCITABINE HYDROCHLORIDE
     Indication: Pancreatic carcinoma metastatic
     Dosage: 1000 MILLIGRAM/SQ. METER
     Route: 065
     Dates: start: 20211229, end: 20220125
  6. DEXMETHYLPHENIDATE [Concomitant]
     Active Substance: DEXMETHYLPHENIDATE
     Indication: Attention deficit hyperactivity disorder
     Dosage: 20 MILLIGRAM
     Route: 048
     Dates: start: 20181201
  7. ESCITALOPRAM [Concomitant]
     Active Substance: ESCITALOPRAM OXALATE
     Indication: Anxiety
     Dosage: 10 MILLIGRAM
     Route: 048
     Dates: start: 20201201
  8. LEVOTHYROXINE [Concomitant]
     Active Substance: LEVOTHYROXINE
     Indication: Hypothyroidism
     Dosage: 88 MICROGRAM
     Route: 048
     Dates: start: 20201201
  9. LEVOTHYROXINE [Concomitant]
     Active Substance: LEVOTHYROXINE
     Dosage: 88 MICROGRAM, QD
     Route: 048
     Dates: start: 20220201
  10. OMEPRAZOLE [Concomitant]
     Active Substance: OMEPRAZOLE
     Indication: Oesophagitis
     Dosage: 40 MILLIGRAM
     Route: 048
     Dates: start: 20210901
  11. OMEPRAZOLE [Concomitant]
     Active Substance: OMEPRAZOLE
     Dosage: 40 MILLIGRAM, Q12H
     Route: 048
     Dates: start: 20220201
  12. ROSUVASTATIN [Concomitant]
     Active Substance: ROSUVASTATIN
     Indication: High density lipoprotein
     Dosage: 5 MILLIGRAM
     Route: 048
     Dates: start: 20200101
  13. ROSUVASTATIN [Concomitant]
     Active Substance: ROSUVASTATIN
     Dosage: 5 MILLIGRAM, QD
     Route: 048
     Dates: start: 20220201
  14. BIFIDOBACTERIUM INFANTIS [Concomitant]
     Indication: Probiotic therapy
     Dosage: 4 MILLIGRAM
     Route: 048
     Dates: start: 20211101
  15. ALPRAZOLAM 1 A PHARMA [Concomitant]
     Indication: Anxiety
     Dosage: 0.25 MILLIGRAM
     Route: 048
     Dates: start: 20200101
  16. ALPRAZOLAM 1 A PHARMA [Concomitant]
     Dosage: 0.25 MILLIGRAM, Q24H PRN FOR INSOMINA
     Route: 048
     Dates: start: 20220102
  17. PROCHLORPERAZINE [Concomitant]
     Active Substance: PROCHLORPERAZINE
     Indication: Nausea
     Dosage: 10 MILLIGRAM
     Route: 048
     Dates: start: 20211229
  18. PROCHLORPERAZINE [Concomitant]
     Active Substance: PROCHLORPERAZINE
     Dosage: 10 MILLIGRAM, Q6H, PRN
     Route: 048
     Dates: start: 20220201
  19. OLANZAPINE [Concomitant]
     Active Substance: OLANZAPINE
     Indication: Sleep disorder
     Dosage: 2.5-UNITS NOT SPECIFIED
     Route: 048
     Dates: start: 20220106
  20. POTASSIUM CHLORIDE [Concomitant]
     Active Substance: POTASSIUM CHLORIDE
     Indication: Electrolyte substitution therapy
     Dosage: 40 MILLIEQUIVALENT
     Route: 048
     Dates: start: 20220101
  21. ACETAMINOPHEN [Concomitant]
     Active Substance: ACETAMINOPHEN
     Indication: Pain
     Dosage: 1000 MILLIGRAM
     Route: 048
     Dates: start: 20211101
  22. ACETAMINOPHEN [Concomitant]
     Active Substance: ACETAMINOPHEN
     Indication: Headache
  23. BANATROL PLUS [Concomitant]
     Indication: Diarrhoea
     Dosage: 1 PACKET
     Route: 048
     Dates: start: 20220101
  24. VITAMIN D3 [Concomitant]
     Active Substance: CHOLECALCIFEROL
     Indication: Adverse event
     Dosage: 1 TAB, QD
     Route: 048
     Dates: start: 20200101
  25. VITAMIN B12 [Concomitant]
     Active Substance: CYANOCOBALAMIN
     Indication: Vitamin B12 deficiency
     Dosage: 250 MCG ORAL TABLET (1 TAB), ONCE DAILY
     Route: 048
     Dates: start: 20201201
  26. YUVAFEM [Concomitant]
     Active Substance: ESTRADIOL HEMIHYDRATE
     Indication: Vulvovaginal dryness
     Dosage: 10 MCG VAGINAL TABLET (1 TAB(S) INTRAVAGINALLY 2 TIMES A WEEK)
     Route: 061
     Dates: start: 20211206
  27. CREON [Concomitant]
     Active Substance: PANCRELIPASE AMYLASE\PANCRELIPASE LIPASE\PANCRELIPASE PROTEASE
     Indication: Enzyme abnormality
     Dosage: 24000 UNITS ORAL DELAYED RELEASE CAPSULE
     Route: 048
     Dates: start: 20211227
  28. CREON [Concomitant]
     Active Substance: PANCRELIPASE AMYLASE\PANCRELIPASE LIPASE\PANCRELIPASE PROTEASE
     Dosage: 3 CAPSULE ORAL Q8H, ROUTINE WITH MEALS
     Route: 048
     Dates: start: 20220201
  29. CANNABIS SATIVA SUBSP. INDICA TOP [Concomitant]
     Active Substance: CANNABIS SATIVA SUBSP. INDICA TOP
     Indication: Anxiety
     Dosage: CANNABIS GUMMIES (1 GUM ORALLY 3 TIMES A DAY, AS NEEDED)
     Route: 048
     Dates: start: 20211101
  30. CANNABIS SATIVA SUBSP. INDICA TOP [Concomitant]
     Active Substance: CANNABIS SATIVA SUBSP. INDICA TOP
     Indication: Appetite disorder
  31. TUMS [Concomitant]
     Active Substance: CALCIUM CARBONATE
     Indication: Calcium deficiency
     Dosage: 500 MG ORAL TABLET, CHEWABLE (1 TAB(S) ORALLY ONCE A DAY)
     Route: 048
     Dates: start: 20220125
  32. LOPERAMIDE [Concomitant]
     Active Substance: LOPERAMIDE
     Indication: Constipation
     Dosage: 2 MILLIGRAM, Q8H, PRN
     Route: 048
     Dates: start: 20220201
  33. ONDANSETRON [Concomitant]
     Active Substance: ONDANSETRON
     Indication: Product used for unknown indication
     Dosage: 8 MG IV PUSH ONCE
     Route: 042
     Dates: start: 20220201

REACTIONS (6)
  - Hypomagnesaemia [Recovered/Resolved]
  - Hypocalcaemia [Recovered/Resolved]
  - Hypokalaemia [Recovered/Resolved]
  - Dehydration [Recovered/Resolved]
  - Anaemia [Recovered/Resolved]
  - Clostridium difficile infection [Recovered/Resolved]

NARRATIVE: CASE EVENT DATE: 20220201
